FAERS Safety Report 7000762-3 (Version None)
Quarter: 2010Q3

REPORT INFORMATION
  Report Type: 
  Country: None (occurrence: None)
  Receive Date: 20100920
  Receipt Date: 20100527
  Transmission Date: 20110219
  Serious: Yes (Other)
  Sender: FDA-Public Use
  Company Number: US-ASTRAZENECA-2006UW24346

PATIENT
  Sex: Female
  Weight: 72.6 kg

DRUGS (31)
  1. SEROQUEL [Suspect]
     Indication: PSYCHOTIC DISORDER
     Route: 048
     Dates: start: 19990101, end: 20030101
  2. SEROQUEL [Suspect]
     Dosage: 100 MG, 600 MG FLUCTUATING
     Route: 048
     Dates: start: 19990701
  3. SEROQUEL [Suspect]
     Route: 048
     Dates: start: 20010608
  4. ZYPREXA [Suspect]
  5. ABILIFY [Concomitant]
  6. CLOZARIL [Concomitant]
  7. HALDOL [Concomitant]
  8. NAVANE [Concomitant]
  9. RISPERDAL [Concomitant]
  10. THIOTHIXENE [Concomitant]
     Route: 048
     Dates: start: 19991001
  11. THIOTHIXENE [Concomitant]
     Route: 048
     Dates: start: 20010102
  12. PERCOCET [Concomitant]
     Dosage: 5/325 MG
     Route: 048
     Dates: start: 20010320
  13. PERCOCET [Concomitant]
     Dosage: ONE TAB 4 - 6 HOURLY AS NEEDED
     Route: 048
     Dates: start: 20011130
  14. XANAX [Concomitant]
     Dosage: 1 - 4 MG
     Route: 048
     Dates: start: 20011130
  15. NEURONTIN [Concomitant]
     Dosage: 3 TABLETS BY MOUTH AT BED TIME THEN INCREASE IT BY 3 TIMES A DAY
     Route: 048
     Dates: start: 20030615
  16. GEODON [Concomitant]
     Dosage: 60 MG IN THE MORNING AND 80 MG AT NIGHT
     Dates: start: 20030708
  17. BUSPAR [Concomitant]
     Dates: start: 20030708
  18. DALMANE [Concomitant]
     Dates: start: 20030708
  19. THORAZINE [Concomitant]
     Dates: start: 20011130
  20. HYDROCODONE BITARTRATE AND ACETAMINOPHEN [Concomitant]
     Dosage: 7.5 / 500
     Route: 048
     Dates: start: 19991001
  21. HYDROCODONE BITARTRATE AND ACETAMINOPHEN [Concomitant]
     Dosage: 5/500 MG
     Route: 048
     Dates: start: 20010312
  22. PROMETHAZINE [Concomitant]
     Route: 048
     Dates: start: 19991001
  23. PROMETHAZINE [Concomitant]
     Route: 048
     Dates: start: 20010312
  24. BENZTROPINE MES [Concomitant]
     Route: 048
     Dates: start: 19991001
  25. VIOXX [Concomitant]
     Dates: start: 19991001
  26. OXYCODONE HCL AND ACETAMINOPHEN [Concomitant]
     Dosage: 5 / 325 MG
     Dates: start: 19991001
  27. METHOCARBAMOL [Concomitant]
     Dates: start: 19991001
  28. CARISOPRODOL [Concomitant]
     Route: 048
     Dates: start: 19991001
  29. FLEXTRA DS [Concomitant]
     Route: 048
     Dates: start: 19991001
  30. CHLORPROMAZINE [Concomitant]
     Route: 048
     Dates: start: 20010209
  31. ALPRAZOLAM [Concomitant]
     Route: 048
     Dates: start: 20010314

REACTIONS (1)
  - PANCREATITIS [None]
